FAERS Safety Report 4357449-5 (Version None)
Quarter: 2004Q2

REPORT INFORMATION
  Report Type: 
  Country: None (occurrence: None)
  Receive Date: 20040513
  Receipt Date: 20040504
  Transmission Date: 20050107
  Serious: Yes (Hospitalization, Other)
  Sender: FDA-Public Use
  Company Number: AT-BRISTOL-MYERS SQUIBB COMPANY-12578365

PATIENT
  Age: 82 Year
  Sex: Female

DRUGS (9)
  1. CARBOPLATIN [Suspect]
     Indication: OVARIAN CANCER
     Route: 042
     Dates: start: 20030117, end: 20030117
  2. PACLITAXEL [Suspect]
     Indication: OVARIAN CANCER
     Route: 042
     Dates: start: 20030117, end: 20030117
  3. DEXAMETHASONE [Concomitant]
     Dates: start: 20030116, end: 20030116
  4. FORTECORTIN [Concomitant]
     Dates: start: 20030117, end: 20030117
  5. DIBONDRIN [Concomitant]
     Dates: start: 20030117, end: 20030117
  6. ULSAL [Concomitant]
     Dates: start: 20030117, end: 20030117
  7. NAVOBAN [Concomitant]
     Dates: start: 20030117, end: 20030117
  8. ALLOSTAD [Concomitant]
     Dates: start: 19990701
  9. TEBOFORTAN [Concomitant]
     Dates: start: 19990101

REACTIONS (4)
  - BONE PAIN [None]
  - GASTROINTESTINAL DISORDER [None]
  - LEUKOPENIA [None]
  - NEUTROPENIA [None]
